FAERS Safety Report 6013092-3 (Version None)
Quarter: 2008Q4

REPORT INFORMATION
  Report Type: 
  Country: None (occurrence: None)
  Receive Date: 20081219
  Receipt Date: 20080507
  Transmission Date: 20090506
  Serious: Yes (Death, Hospitalization, Other)
  Sender: FDA-Public Use
  Company Number: US-WYE-H07162008

PATIENT
  Age: 44 Year
  Sex: Female
  Weight: 68.1 kg

DRUGS (12)
  1. IBUPROFEN [Suspect]
     Indication: ILL-DEFINED DISORDER
     Dosage: UNKNOWN
     Route: 048
  2. NEURONTIN [Suspect]
     Indication: BIPOLAR DISORDER
     Route: 065
     Dates: start: 19951201
  3. NEURONTIN [Suspect]
     Indication: ALCOHOLIC SEIZURE
     Route: 065
     Dates: start: 20021016
  4. NEURONTIN [Suspect]
     Indication: MOVEMENT DISORDER
     Route: 065
     Dates: start: 20011030
  5. NEURONTIN [Suspect]
     Indication: PAIN
  6. CARISOPRODOL [Concomitant]
     Indication: NECK PAIN
     Dosage: UNKNOWN
     Route: 065
  7. CARISOPRODOL [Concomitant]
     Indication: BACK PAIN
  8. NORTRIPTYLINE HCL [Suspect]
     Indication: ILL-DEFINED DISORDER
     Dosage: UNKNOWN
     Route: 065
  9. OXAZEPAM [Concomitant]
     Dosage: UNKNOWN
     Route: 065
  10. OPIOIDS [Concomitant]
     Dosage: UNKNOWN
     Route: 065
  11. VENLAFAXINE HYDROCHLORIDE [Suspect]
     Indication: ILL-DEFINED DISORDER
     Dosage: UNKNOWN
     Route: 048
  12. AMITRIPTYLINE HYDROCHLORIDE [Suspect]
     Indication: ILL-DEFINED DISORDER
     Dosage: UNKNOWN
     Route: 065

REACTIONS (8)
  - COMPLETED SUICIDE [None]
  - CONSCIOUSNESS FLUCTUATING [None]
  - HOMICIDAL IDEATION [None]
  - INTENTIONAL DRUG MISUSE [None]
  - INTENTIONAL OVERDOSE [None]
  - LOSS OF CONSCIOUSNESS [None]
  - MAJOR DEPRESSION [None]
  - SUICIDAL IDEATION [None]
